FAERS Safety Report 13571046 (Version 1)
Quarter: 2017Q2

REPORT INFORMATION
  Report Type: Spontaneous
  Country: US (occurrence: US)
  Receive Date: 20170523
  Receipt Date: 20170523
  Transmission Date: 20170830
  Serious: No
  Sender: FDA-Public Use
  Company Number: US-ZYDUS-012392

PATIENT
  Age: 62 Year
  Sex: Male

DRUGS (2)
  1. TOPIRAMATE. [Suspect]
     Active Substance: TOPIRAMATE
     Indication: HEADACHE
     Route: 048
     Dates: start: 201607, end: 20160922
  2. METFORMIN [Concomitant]
     Active Substance: METFORMIN HYDROCHLORIDE
     Indication: BLOOD GLUCOSE FLUCTUATION
     Route: 048

REACTIONS (3)
  - Thyroid hormones increased [Not Recovered/Not Resolved]
  - Dizziness [Not Recovered/Not Resolved]
  - CSF white blood cell count increased [Not Recovered/Not Resolved]

NARRATIVE: CASE EVENT DATE: 2016
